FAERS Safety Report 9626050 (Version 1)
Quarter: 2013Q4

REPORT INFORMATION
  Report Type: Spontaneous
  Country: US (occurrence: US)
  Receive Date: 20131016
  Receipt Date: 20131016
  Transmission Date: 20140711
  Serious: Yes (Hospitalization, Other)
  Sender: FDA-Public Use
  Company Number: US-SA-2013SA101230

PATIENT
  Age: 55 Year
  Sex: Male

DRUGS (1)
  1. ALLEGRA-D [Suspect]
     Indication: HYPERSENSITIVITY
     Dosage: DOSE:-60/120 MG
     Route: 048

REACTIONS (8)
  - Staphylococcal infection [Not Recovered/Not Resolved]
  - Oedema peripheral [Not Recovered/Not Resolved]
  - Fall [Unknown]
  - Femur fracture [Not Recovered/Not Resolved]
  - Gait disturbance [Not Recovered/Not Resolved]
  - Osteonecrosis [Not Recovered/Not Resolved]
  - Spinal fusion surgery [Not Recovered/Not Resolved]
  - Joint dislocation [Not Recovered/Not Resolved]
